FAERS Safety Report 9546479 (Version 1)
Quarter: 2013Q3

REPORT INFORMATION
  Report Type: Spontaneous
  Country: US (occurrence: US)
  Receive Date: 20130923
  Receipt Date: 20130923
  Transmission Date: 20140515
  Serious: Yes (Hospitalization)
  Sender: FDA-Public Use
  Company Number: US-TMC-CABO-13003324

PATIENT
  Age: 64 Year
  Sex: Male

DRUGS (5)
  1. COMETRIQ [Suspect]
     Indication: THYROID CANCER
     Dosage: 140 MG, QD
     Route: 048
     Dates: start: 20130125, end: 20130409
  2. COMETRIQ [Suspect]
     Dosage: 140 MG, QD
     Route: 048
     Dates: start: 20130606, end: 201309
  3. SYNTHROID [Concomitant]
  4. DIOVAN [Concomitant]
  5. AMLODIPINE [Concomitant]

REACTIONS (1)
  - Arrhythmia [Recovered/Resolved]
